FAERS Safety Report 20520179 (Version 1)
Quarter: 2022Q1

REPORT INFORMATION
  Report Type: Spontaneous
  Country: CO (occurrence: CO)
  Receive Date: 20220225
  Receipt Date: 20220225
  Transmission Date: 20220423
  Serious: Yes (Other)
  Sender: FDA-Public Use
  Company Number: CO-009507513-2202COL000440

PATIENT
  Age: 65 Year
  Sex: Male

DRUGS (2)
  1. KEYTRUDA [Suspect]
     Active Substance: PEMBROLIZUMAB
     Indication: Oesophageal adenocarcinoma stage IV
     Dosage: UNK
     Dates: start: 20220108, end: 20220108
  2. LYRICA [Concomitant]
     Active Substance: PREGABALIN
     Indication: Pain

REACTIONS (3)
  - Thrombosis [Unknown]
  - Gait disturbance [Unknown]
  - Vision blurred [Unknown]

NARRATIVE: CASE EVENT DATE: 20220127
